FAERS Safety Report 9981287 (Version 1)
Quarter: 2014Q1

REPORT INFORMATION
  Report Type: Spontaneous
  Country: US (occurrence: None)
  Receive Date: 20140305
  Receipt Date: 20140305
  Transmission Date: 20141002
  Serious: Yes (Hospitalization)
  Sender: FDA-Public Use
  Company Number: 2014RT000027

PATIENT
  Age: 9 Year
  Sex: Male
  Weight: 17.2 kg

DRUGS (1)
  1. PROCYSBI [Suspect]
     Indication: CYSTINOSIS
     Route: 048

REACTIONS (1)
  - Catheter site infection [None]
